FAERS Safety Report 9308058 (Version 1)
Quarter: 2013Q2

REPORT INFORMATION
  Report Type: Spontaneous
  Country: US (occurrence: US)
  Receive Date: 20130524
  Receipt Date: 20130524
  Transmission Date: 20140414
  Serious: No
  Sender: FDA-Public Use
  Company Number: US-BAYER-2013-063734

PATIENT
  Sex: Female
  Weight: 78.01 kg

DRUGS (8)
  1. BETASERON [Suspect]
     Indication: MULTIPLE SCLEROSIS
     Dosage: UNK
  2. BIOTIN [Concomitant]
  3. VITAMIN D3 [Concomitant]
  4. VITAMIN B6 [Concomitant]
  5. PARACETAMOL [Concomitant]
  6. CALCIUM D [Concomitant]
  7. KLONOPIN [Concomitant]
  8. OXYCODONE [Concomitant]

REACTIONS (2)
  - Injection site pain [None]
  - Rash erythematous [None]
